FAERS Safety Report 8450103-X (Version None)
Quarter: 2012Q2

REPORT INFORMATION
  Report Type: 
  Country: None (occurrence: None)
  Receive Date: 20120614
  Receipt Date: 20120614
  Transmission Date: 20120825
  Serious: No
  Sender: FDA-Public Use
  Company Number: None

PATIENT
  Sex: Female

DRUGS (1)
  1. ENBREL [Suspect]
     Indication: RHEUMATOID ARTHRITIS
     Dosage: 50MG SQ QWK
     Route: 058
     Dates: start: 20120301

REACTIONS (4)
  - AXILLARY PAIN [None]
  - VISUAL IMPAIRMENT [None]
  - EYE PAIN [None]
  - AXILLARY MASS [None]
